FAERS Safety Report 5232110-3 (Version None)
Quarter: 2007Q1

REPORT INFORMATION
  Report Type: 
  Country: None (occurrence: None)
  Receive Date: 20070205
  Receipt Date: 20070130
  Transmission Date: 20070707
  Serious: Yes (Death)
  Sender: FDA-Public Use
  Company Number: 163-21880-06120105

PATIENT
  Age: 67 Year
  Sex: Male

DRUGS (1)
  1. REVLIMID [Suspect]
     Indication: PROSTATE CANCER
     Dosage: 10 MG, 1 IN 1 D, ORAL
     Route: 048
     Dates: start: 20061024

REACTIONS (1)
  - NO ADVERSE EFFECT [None]
